FAERS Safety Report 4425238-9 (Version None)
Quarter: 2004Q3

REPORT INFORMATION
  Report Type: 
  Country: None (occurrence: None)
  Receive Date: 20040813
  Receipt Date: 20040729
  Transmission Date: 20050211
  Serious: Yes (Hospitalization)
  Sender: FDA-Public Use
  Company Number: US-AMGEN-KDL085038

PATIENT
  Sex: Female

DRUGS (1)
  1. ENBREL [Suspect]
     Indication: RHEUMATOID ARTHRITIS
     Route: 058
     Dates: start: 20030501, end: 20040506

REACTIONS (11)
  - ANAPHYLACTIC REACTION [None]
  - CARDIO-RESPIRATORY ARREST [None]
  - DISORIENTATION [None]
  - EPIGLOTTITIS [None]
  - FEELING HOT [None]
  - HYPOTENSION [None]
  - PHARYNGEAL OEDEMA [None]
  - RASH [None]
  - STRIDOR [None]
  - URTICARIA [None]
  - WHEEZING [None]
